FAERS Safety Report 24103485 (Version 1)
Quarter: 2024Q3

REPORT INFORMATION
  Report Type: Spontaneous
  Country: CA (occurrence: None)
  Receive Date: 20240717
  Receipt Date: 20240717
  Transmission Date: 20241016
  Serious: Yes (Other)
  Sender: ASTRAZENECA
  Company Number: 2020SE03118

PATIENT
  Sex: Female
  Weight: 106 kg

DRUGS (9)
  1. SYMBICORT [Suspect]
     Active Substance: BUDESONIDE\FORMOTEROL FUMARATE DIHYDRATE
     Indication: Asthma
     Dosage: 2 DF, TWO TIMES A DAY
     Route: 055
  2. ATROVENT [Suspect]
     Active Substance: IPRATROPIUM BROMIDE
     Dosage: 20.0UG UNKNOWN
     Route: 065
  3. CLARITIN [Suspect]
     Active Substance: LORATADINE
     Route: 065
  4. TIOTROPIUM [Suspect]
     Active Substance: TIOTROPIUM
     Route: 065
  5. MEPOLIZUMAB [Suspect]
     Active Substance: MEPOLIZUMAB
     Indication: Asthma
     Dosage: 100.0MG UNKNOWN
     Route: 042
  6. VENTOLIN HFA [Suspect]
     Active Substance: ALBUTEROL SULFATE
     Indication: Asthma
     Route: 065
  7. ALBUTEROL SULFATE\IPRATROPIUM BROMIDE [Suspect]
     Active Substance: ALBUTEROL SULFATE\IPRATROPIUM BROMIDE
     Dosage: 2.0DF UNKNOWN
     Route: 065
  8. SODIUM BICARBONATE\SODIUM CHLORIDE [Concomitant]
     Active Substance: SODIUM BICARBONATE\SODIUM CHLORIDE
     Indication: Asthma
  9. OMNARIS [Concomitant]
     Active Substance: CICLESONIDE
     Indication: Asthma
     Route: 045

REACTIONS (10)
  - Abnormal sensation in eye [Unknown]
  - Chest discomfort [Unknown]
  - Diarrhoea [Unknown]
  - Eye irritation [Unknown]
  - Intestinal haemorrhage [Unknown]
  - Labyrinthitis [Unknown]
  - Nasopharyngitis [Unknown]
  - Oropharyngeal pain [Unknown]
  - Pneumonia [Unknown]
  - Therapeutic response unexpected [Unknown]
